FAERS Safety Report 23322465 (Version 1)
Quarter: 2023Q4

REPORT INFORMATION
  Report Type: Spontaneous
  Country: CN (occurrence: CN)
  Receive Date: 20231220
  Receipt Date: 20231220
  Transmission Date: 20240110
  Serious: Yes (Life-Threatening, Other)
  Sender: FDA-Public Use
  Company Number: CN-BoehringerIngelheim-2023-BI-279278

PATIENT
  Age: 87 Year
  Sex: Female

DRUGS (4)
  1. LINAGLIPTIN [Suspect]
     Active Substance: LINAGLIPTIN
     Indication: Blood glucose abnormal
     Route: 048
     Dates: start: 20231116, end: 20231209
  2. DIAMICRON [Concomitant]
     Indication: Blood glucose abnormal
     Route: 048
     Dates: start: 20231116, end: 20231209
  3. METFORMIN [Concomitant]
     Active Substance: METFORMIN HYDROCHLORIDE
     Indication: Blood glucose abnormal
     Route: 048
     Dates: start: 20231116, end: 20231209
  4. GLUCOBAY [Concomitant]
     Active Substance: ACARBOSE
     Indication: Blood glucose abnormal
     Route: 048
     Dates: start: 20231116, end: 20231209

REACTIONS (3)
  - Hypoglycaemic coma [Recovering/Resolving]
  - Off label use [Unknown]
  - Product use issue [Unknown]

NARRATIVE: CASE EVENT DATE: 20231209
